FAERS Safety Report 9629659 (Version 1)
Quarter: 2013Q4

REPORT INFORMATION
  Report Type: Spontaneous
  Country: US (occurrence: US)
  Receive Date: 20131017
  Receipt Date: 20131017
  Transmission Date: 20140711
  Serious: No
  Sender: FDA-Public Use
  Company Number: US-BAYER-2013-125944

PATIENT
  Sex: Female

DRUGS (4)
  1. ALEVE TABLET [Suspect]
     Dosage: 1 DF, QD
     Route: 048
     Dates: start: 201308
  2. LISINOPRIL [Concomitant]
     Dosage: UNK
  3. VITAMIN D3 [Concomitant]
     Dosage: UNK
  4. SIMVASTATIN [Concomitant]

REACTIONS (2)
  - Therapeutic response unexpected [None]
  - Incorrect drug administration duration [None]
